FAERS Safety Report 5993957-9 (Version None)
Quarter: 2008Q4

REPORT INFORMATION
  Report Type: 
  Country: None (occurrence: None)
  Receive Date: 20081212
  Receipt Date: 20081209
  Transmission Date: 20090506
  Serious: Yes (Other)
  Sender: FDA-Public Use
  Company Number: A0760092A

PATIENT
  Age: 50 Year
  Sex: Female
  Weight: 88 kg

DRUGS (3)
  1. LAPATINIB [Suspect]
     Dosage: 500MG PER DAY
     Route: 048
     Dates: start: 20081015
  2. DOCETAXEL [Suspect]
     Dosage: 100MGM2 CYCLIC
     Route: 042
     Dates: start: 20081015
  3. TRASTUZUMAB [Suspect]
     Dosage: 4MGK WEEKLY
     Route: 042
     Dates: start: 20081015

REACTIONS (1)
  - NEUTROPENIA [None]
